FAERS Safety Report 14160248 (Version 2)
Quarter: 2025Q3

REPORT INFORMATION
  Report Type: Spontaneous
  Country: US (occurrence: US)
  Receive Date: 20171106
  Receipt Date: 20250815
  Transmission Date: 20251021
  Serious: Yes (Hospitalization, Other)
  Sender: ASTELLAS
  Company Number: US-MLMSERVICE-20171023-0937909-1

PATIENT
  Age: 33 Year
  Sex: Male

DRUGS (2)
  1. TACROLIMUS [Suspect]
     Active Substance: TACROLIMUS
     Indication: Lung transplant
     Route: 065
  2. MYCOPHENOLATE MOFETIL [Suspect]
     Active Substance: MYCOPHENOLATE MOFETIL
     Indication: Lung transplant
     Route: 065

REACTIONS (9)
  - Mitral valve incompetence [Recovering/Resolving]
  - Tricuspid valve incompetence [Recovering/Resolving]
  - Bell^s palsy [Recovered/Resolved]
  - Atrioventricular block [Recovered/Resolved]
  - Neutropenia [Recovered/Resolved]
  - Leukopenia [Unknown]
  - Lyme disease [Recovered/Resolved]
  - Systemic infection [Recovered/Resolved]
  - Off label use [Unknown]
